FAERS Safety Report 5406677-6 (Version None)
Quarter: 2007Q3

REPORT INFORMATION
  Report Type: 
  Country: None (occurrence: None)
  Receive Date: 20070806
  Receipt Date: 20070806
  Transmission Date: 20080115
  Serious: Yes (Other)
  Sender: FDA-Public Use
  Company Number: None

PATIENT
  Age: 17 Year
  Sex: Female

DRUGS (1)
  1. PPD TB SKIN TEST [Suspect]
     Dosage: INTRADERMAL-RT FOREARM
     Route: 023

REACTIONS (2)
  - CONVULSION [None]
  - SYNCOPE [None]
